FAERS Safety Report 21214485 (Version 1)
Quarter: 2022Q3

REPORT INFORMATION
  Report Type: Spontaneous
  Country: TR (occurrence: TR)
  Receive Date: 20220816
  Receipt Date: 20220816
  Transmission Date: 20221027
  Serious: Yes (Hospitalization)
  Sender: FDA-Public Use
  Company Number: TR-ABBVIE-22K-161-4505259-00

PATIENT
  Age: 42 Year
  Sex: Female
  Weight: 84 kg

DRUGS (7)
  1. LEUPROLIDE [Suspect]
     Active Substance: LEUPROLIDE
     Indication: Invasive ductal breast carcinoma
     Route: 065
     Dates: start: 20190320, end: 20210309
  2. LEUPROLIDE [Suspect]
     Active Substance: LEUPROLIDE
     Route: 065
     Dates: start: 20210319, end: 20211207
  3. TAMOXIFEN [Suspect]
     Active Substance: TAMOXIFEN
     Indication: Invasive ductal breast carcinoma
     Route: 065
     Dates: start: 20190320, end: 20210309
  4. TAMOXIFEN [Suspect]
     Active Substance: TAMOXIFEN
     Route: 065
     Dates: start: 20210310, end: 20210318
  5. CHOLECALCIFEROL [Concomitant]
     Active Substance: CHOLECALCIFEROL
     Indication: Vitamin D deficiency
     Dates: start: 20220414
  6. LETROZOLE [Concomitant]
     Active Substance: LETROZOLE
     Indication: Invasive ductal breast carcinoma
     Route: 048
     Dates: start: 20210319, end: 20220705
  7. GOSERELIN [Concomitant]
     Active Substance: GOSERELIN
     Indication: Invasive ductal breast carcinoma
     Route: 058
     Dates: start: 20211208, end: 20220705

REACTIONS (4)
  - Humerus fracture [Recovered/Resolved]
  - Pain in extremity [Recovered/Resolved]
  - Joint range of motion decreased [Recovered/Resolved]
  - Road traffic accident [Recovered/Resolved]

NARRATIVE: CASE EVENT DATE: 20220705
